FAERS Safety Report 5088142-1 (Version None)
Quarter: 2006Q3

REPORT INFORMATION
  Report Type: 
  Country: None (occurrence: None)
  Receive Date: 20060821
  Receipt Date: 20060810
  Transmission Date: 20061208
  Serious: Yes (Hospitalization)
  Sender: FDA-Public Use
  Company Number: 2006-02079

PATIENT
  Age: 49 Year
  Sex: Female

DRUGS (2)
  1. VELCADE [Suspect]
     Indication: MULTIPLE MYELOMA
     Dates: start: 20060707, end: 20060713
  2. DOXIL [Concomitant]

REACTIONS (8)
  - ASTHENIA [None]
  - DYSPHONIA [None]
  - GRAND MAL CONVULSION [None]
  - MENTAL STATUS CHANGES [None]
  - NAUSEA [None]
  - REVERSIBLE POSTERIOR LEUKOENCEPHALOPATHY SYNDROME [None]
  - VISION BLURRED [None]
  - VOMITING [None]
